FAERS Safety Report 20460367 (Version 1)
Quarter: 2022Q1

REPORT INFORMATION
  Report Type: Spontaneous
  Country: US (occurrence: US)
  Receive Date: 20220211
  Receipt Date: 20220211
  Transmission Date: 20220423
  Serious: Yes (Hospitalization, Other)
  Sender: FDA-Public Use
  Company Number: US-BIOVITRUM-2022US01925

PATIENT
  Sex: Female
  Weight: 7.264 kg

DRUGS (14)
  1. SYNAGIS [Suspect]
     Active Substance: PALIVIZUMAB
     Indication: Premature baby
     Route: 030
     Dates: start: 202110
  2. SYNAGIS [Suspect]
     Active Substance: PALIVIZUMAB
     Indication: Trisomy 21
  3. SYNAGIS [Suspect]
     Active Substance: PALIVIZUMAB
     Indication: Low birth weight baby
  4. SYNAGIS [Suspect]
     Active Substance: PALIVIZUMAB
     Indication: Congenital arterial malformation
  5. DIGOXIN [Concomitant]
     Active Substance: DIGOXIN
  6. AUGMENTIN [Concomitant]
     Active Substance: AMOXICILLIN\CLAVULANATE POTASSIUM
     Dosage: 125-31.25/SUSP RECON
  7. ASPIRIN [Concomitant]
     Active Substance: ASPIRIN
  8. PEPCID [Concomitant]
     Active Substance: FAMOTIDINE
  9. POTASSIUM [Concomitant]
     Active Substance: POTASSIUM
     Dosage: 595(99)MG
  10. LASIX [Concomitant]
     Active Substance: FUROSEMIDE
  11. ALDACTONE [Concomitant]
     Active Substance: SPIRONOLACTONE
  12. GLYCOPYRROLATE [Concomitant]
     Active Substance: GLYCOPYRROLATE
  13. METOPROLOL SUCCINATE [Concomitant]
     Active Substance: METOPROLOL SUCCINATE
  14. KEPPRA [Concomitant]
     Active Substance: LEVETIRACETAM

REACTIONS (1)
  - Pneumonia aspiration [Unknown]
